FAERS Safety Report 18372763 (Version 3)
Quarter: 2020Q4

REPORT INFORMATION
  Report Type: Spontaneous
  Country: US (occurrence: US)
  Receive Date: 20201012
  Receipt Date: 20201215
  Transmission Date: 20210114
  Serious: No
  Sender: FDA-Public Use
  Company Number: US-LUPIN PHARMACEUTICALS INC.-2020-07019

PATIENT
  Sex: Male
  Weight: 115.19 kg

DRUGS (3)
  1. IMATINIB MESYLATE TABLET, 400 MG [Suspect]
     Active Substance: IMATINIB MESYLATE
     Indication: PRODUCT USED FOR UNKNOWN INDICATION
     Dosage: 400 MILLIGRAM, QD
     Route: 048
  2. IMATINIB MESYLATE TABLET, 400 MG [Suspect]
     Active Substance: IMATINIB MESYLATE
     Dosage: 400 MILLIGRAM,QD
     Route: 048
     Dates: start: 202008
  3. IMATINIB MESYLATE TABLET, 400 MG [Suspect]
     Active Substance: IMATINIB MESYLATE
     Dosage: 400 MILLIGRAM, QD
     Route: 048
     Dates: start: 202007

REACTIONS (4)
  - Diarrhoea [Unknown]
  - Product colour issue [Unknown]
  - Product shape issue [Unknown]
  - Abdominal discomfort [Unknown]
